FAERS Safety Report 9915724 (Version 3)
Quarter: 2017Q4

REPORT INFORMATION
  Report Type: Spontaneous
  Country: GB (occurrence: GB)
  Receive Date: 20140221
  Receipt Date: 20171107
  Transmission Date: 20180321
  Serious: Yes (Death, Congenital Anomaly)
  Sender: FDA-Public Use
  Company Number: GB-ACCORD-021893

PATIENT
  Sex: Female

DRUGS (1)
  1. ALLOPURINOL. [Suspect]
     Active Substance: ALLOPURINOL
     Indication: GOUT
     Route: 064

REACTIONS (2)
  - Congenital multiplex arthrogryposis [Fatal]
  - Foetal exposure during pregnancy [Unknown]
